FAERS Safety Report 18127450 (Version 1)
Quarter: 2020Q3

REPORT INFORMATION
  Report Type: Other
  Country: US (occurrence: US)
  Receive Date: 20200810
  Receipt Date: 20200810
  Transmission Date: 20201103
  Serious: Yes (Hospitalization, Other)
  Sender: FDA-Public Use
  Company Number: US-ROCHE-2650969

PATIENT

DRUGS (5)
  1. RITUXIMAB. [Suspect]
     Active Substance: RITUXIMAB
     Indication: IMMUNOSUPPRESSION
     Route: 065
  2. TOCILIZUMAB. [Suspect]
     Active Substance: TOCILIZUMAB
     Indication: COVID-19
     Route: 065
  3. AZATHIOPRINE. [Suspect]
     Active Substance: AZATHIOPRINE
     Indication: IMMUNOSUPPRESSION
     Route: 065
  4. MYCOPHENOLATE MOFETIL. [Suspect]
     Active Substance: MYCOPHENOLATE MOFETIL
     Indication: IMMUNOSUPPRESSION
     Route: 065
  5. PREDNISONE. [Suspect]
     Active Substance: PREDNISONE
     Indication: IMMUNOSUPPRESSION
     Route: 065

REACTIONS (16)
  - Urinary tract infection [Unknown]
  - Intentional product use issue [Unknown]
  - Skin infection [Unknown]
  - Off label use [Unknown]
  - Pneumonia [Unknown]
  - Urosepsis [Unknown]
  - Bacteraemia [Unknown]
  - Clostridium difficile infection [Unknown]
  - COVID-19 [Unknown]
  - Fungaemia [Unknown]
  - Fungal infection [Unknown]
  - Gastrointestinal infection [Unknown]
  - Meningitis [Unknown]
  - Respiratory tract infection [Unknown]
  - Biliary sepsis [Unknown]
  - Infection [Unknown]
